FAERS Safety Report 8600026-8 (Version None)
Quarter: 2012Q3

REPORT INFORMATION
  Report Type: 
  Country: None (occurrence: None)
  Receive Date: 20120816
  Receipt Date: 20120809
  Transmission Date: 20120928
  Serious: Yes (Hospitalization)
  Sender: FDA-Public Use
  Company Number: PHHY2012FR069360

PATIENT
  Sex: Female

DRUGS (6)
  1. ENALAPRIL MALEATE [Suspect]
     Route: 048
     Dates: end: 20120704
  2. NICARDIPINE HCL [Suspect]
     Dosage: 2 DF, DAILY
     Route: 048
     Dates: start: 20120401
  3. ACETAMINOPHEN [Suspect]
     Dosage: 3 DF, DAILY
     Route: 048
  4. LANTUS [Suspect]
     Dosage: 2 SUBCUTANEOUS INJ DAILY
     Route: 058
  5. BISOPROLOL FUMARATE [Suspect]
     Dosage: 1 DF, DAILY
     Route: 048
  6. RABEPRAZOLE SODIUM [Suspect]
     Dates: start: 20120401, end: 20120704

REACTIONS (5)
  - WEIGHT DECREASED [None]
  - NAUSEA [None]
  - VOMITING [None]
  - DYSGEUSIA [None]
  - DECREASED APPETITE [None]
